FAERS Safety Report 17882409 (Version 1)
Quarter: 2020Q2

REPORT INFORMATION
  Report Type: Spontaneous
  Country: DE (occurrence: DE)
  Receive Date: 20200610
  Receipt Date: 20200610
  Transmission Date: 20200714
  Serious: Yes (Hospitalization)
  Sender: FDA-Public Use
  Company Number: NVSC2020DE161264

PATIENT
  Age: 28 Month
  Sex: Female
  Weight: 46 kg

DRUGS (6)
  1. NUROFEN [Concomitant]
     Active Substance: IBUPROFEN
     Indication: PAIN
  2. PARACETAMOL [Concomitant]
     Active Substance: ACETAMINOPHEN
     Indication: PAIN
  3. AMOXICILLIN. [Suspect]
     Active Substance: AMOXICILLIN
     Indication: BRONCHITIS
     Dosage: 5 ML, Q8H (5-5-5-0 ML)
     Route: 048
     Dates: start: 20200202, end: 20200202
  4. SALBUTAMOL [Concomitant]
     Active Substance: ALBUTEROL
     Indication: BRONCHITIS
     Dosage: 2-2-2 HUB (INHALATIONSSPRAY)
     Route: 055
     Dates: start: 20200202, end: 20200203
  5. NUROFEN [Concomitant]
     Active Substance: IBUPROFEN
     Indication: PYREXIA
     Dosage: 5 ML, Q8H (5-5-5ML)
     Route: 048
     Dates: start: 20200128, end: 20200203
  6. PARACETAMOL [Concomitant]
     Active Substance: ACETAMINOPHEN
     Indication: PYREXIA
     Dosage: 15 ML, QD (0-5-5-5ML)
     Route: 048
     Dates: start: 20200128, end: 20200203

REACTIONS (2)
  - Fluid intake reduced [Recovered/Resolved]
  - Vomiting [Recovered/Resolved]

NARRATIVE: CASE EVENT DATE: 20200203
